FAERS Safety Report 14634223 (Version 2)
Quarter: 2018Q2

REPORT INFORMATION
  Report Type: Spontaneous
  Country: JP (occurrence: JP)
  Receive Date: 20180314
  Receipt Date: 20180418
  Transmission Date: 20180711
  Serious: Yes (Other)
  Sender: FDA-Public Use
  Company Number: JP-ROCHE-2089533

PATIENT
  Age: 83 Year
  Sex: Male

DRUGS (13)
  1. GASMOTIN [Concomitant]
     Active Substance: MOSAPRIDE CITRATE
     Route: 048
     Dates: start: 20170714
  2. HALFDIGOXIN [Concomitant]
     Active Substance: DIGOXIN
     Route: 048
     Dates: start: 20070906
  3. FLAVERIC [Concomitant]
     Active Substance: BENPROPERINE PHOSPHATE
     Route: 048
     Dates: start: 20180126, end: 20180203
  4. CLEANAL [Concomitant]
     Active Substance: FUDOSTEINE
     Route: 048
     Dates: start: 20170530
  5. TAMIFLU [Suspect]
     Active Substance: OSELTAMIVIR PHOSPHATE
     Indication: INFLUENZA
     Route: 048
     Dates: start: 20180126, end: 20180128
  6. NU-LOTAN [Concomitant]
     Active Substance: LOSARTAN POTASSIUM
     Route: 048
     Dates: start: 20120622
  7. L-CARBOCISTEINE [Concomitant]
     Active Substance: CARBOCYSTEINE
     Route: 048
     Dates: start: 20180126, end: 20180203
  8. MYSLEE [Concomitant]
     Active Substance: ZOLPIDEM TARTRATE
     Route: 048
     Dates: start: 20160527
  9. TAMIFLU [Suspect]
     Active Substance: OSELTAMIVIR PHOSPHATE
     Route: 048
     Dates: start: 20180129, end: 20180129
  10. BAYASPIRIN [Concomitant]
     Active Substance: ASPIRIN
     Route: 048
     Dates: start: 20010324
  11. LASIX [Concomitant]
     Active Substance: FUROSEMIDE
     Route: 048
     Dates: start: 20070619
  12. SOLANTAL [Concomitant]
     Active Substance: TIARAMIDE
     Route: 048
     Dates: start: 20180126, end: 20180129
  13. CALONAL [Concomitant]
     Active Substance: ACETAMINOPHEN
     Dosage: TAKE AS NEEDED AT THERMOGENESIS
     Route: 048
     Dates: start: 20180126, end: 20180127

REACTIONS (1)
  - Delirium [Recovered/Resolved]

NARRATIVE: CASE EVENT DATE: 20180128
